FAERS Safety Report 21338775 (Version 1)
Quarter: 2022Q3

REPORT INFORMATION
  Report Type: Spontaneous
  Country: US (occurrence: None)
  Receive Date: 20220915
  Receipt Date: 20220915
  Transmission Date: 20221027
  Serious: Yes (Hospitalization, Other)
  Sender: FDA-Public Use
  Company Number: 2022A311844

PATIENT
  Sex: Female

DRUGS (1)
  1. SYMBICORT [Suspect]
     Active Substance: BUDESONIDE\FORMOTEROL FUMARATE DIHYDRATE
     Indication: Chronic obstructive pulmonary disease
     Dosage: 160/4.5 MCG 2 PUFFS, TWO TIMES A DAY
     Route: 055

REACTIONS (7)
  - Dyspnoea [Unknown]
  - Cough [Unknown]
  - Intentional product misuse [Unknown]
  - Device use error [Unknown]
  - Device use issue [Unknown]
  - Product dose omission issue [Unknown]
  - Device defective [Unknown]
